FAERS Safety Report 11682853 (Version 2)
Quarter: 2015Q4

REPORT INFORMATION
  Report Type: Spontaneous
  Country: US (occurrence: US)
  Receive Date: 20151029
  Receipt Date: 20151102
  Transmission Date: 20160304
  Serious: Yes (Hospitalization)
  Sender: FDA-Public Use
  Company Number: PHEH2015US021846

PATIENT
  Age: 65 Year
  Sex: Female

DRUGS (1)
  1. VOTRIENT [Suspect]
     Active Substance: PAZOPANIB HYDROCHLORIDE
     Indication: MALAISE
     Dosage: 800 MG, QD
     Route: 048
     Dates: start: 20150805, end: 20150926

REACTIONS (2)
  - Colonic abscess [Unknown]
  - Off label use [Unknown]

NARRATIVE: CASE EVENT DATE: 20150926
